FAERS Safety Report 5312190-7 (Version None)
Quarter: 2007Q2

REPORT INFORMATION
  Report Type: 
  Country: None (occurrence: None)
  Receive Date: 20070430
  Receipt Date: 20061020
  Transmission Date: 20071010
  Serious: No
  Sender: FDA-Public Use
  Company Number: 2006UW18892

PATIENT
  Sex: Female
  Weight: 71.8 kg

DRUGS (15)
  1. NEXIUM [Suspect]
     Indication: CHEST PAIN
     Route: 048
  2. NEXIUM [Suspect]
     Indication: GASTROOESOPHAGEAL REFLUX DISEASE
     Route: 048
  3. COZAAR [Concomitant]
  4. SYNTHROID [Concomitant]
  5. ASPIRIN [Concomitant]
  6. VITAMIN B [Concomitant]
  7. NEURONTIN [Concomitant]
  8. ZOCOR [Concomitant]
  9. SLEEPING PILL [Concomitant]
  10. ENDOCET [Concomitant]
  11. CALTRATE PLUS D [Concomitant]
     Dosage: ONE TWICE A DAY
  12. ALPRAZOLAM [Concomitant]
     Dosage: AS REQUIRED
  13. RHINOCORT AQUA [Concomitant]
     Route: 045
  14. AMBIEN [Concomitant]
     Dosage: EVERY NIGHT AS REQUIRED
  15. FOSAMAX [Concomitant]
     Dosage: EVERY WEEK

REACTIONS (2)
  - CHEST PAIN [None]
  - NEURALGIA [None]
